FAERS Safety Report 18687611 (Version 3)
Quarter: 2025Q3

REPORT INFORMATION
  Report Type: Report from Study
  Country: US (occurrence: US)
  Receive Date: 20201231
  Receipt Date: 20250910
  Transmission Date: 20251020
  Serious: No
  Sender: NOVARTIS
  Company Number: NVSC2020US345365

PATIENT
  Sex: Female

DRUGS (2)
  1. PROMACTA [Suspect]
     Active Substance: ELTROMBOPAG OLAMINE
     Indication: Product used for unknown indication
     Dosage: 50 MG, QD
     Route: 065
  2. PROMACTA [Suspect]
     Active Substance: ELTROMBOPAG OLAMINE
     Dosage: 75 MG, BID
     Route: 048

REACTIONS (1)
  - Platelet count decreased [Unknown]
